FAERS Safety Report 7081359-6 (Version None)
Quarter: 2010Q4

REPORT INFORMATION
  Report Type: 
  Country: None (occurrence: None)
  Receive Date: 20101103
  Receipt Date: 20101025
  Transmission Date: 20110411
  Serious: Yes (Hospitalization)
  Sender: FDA-Public Use
  Company Number: PHHY2010US71950

PATIENT
  Sex: Male
  Weight: 114.74 kg

DRUGS (1)
  1. EXJADE [Suspect]
     Dosage: 1000 MG, BID
     Route: 048

REACTIONS (2)
  - CARDIAC FAILURE CONGESTIVE [None]
  - CORONARY ARTERY DISEASE [None]
